FAERS Safety Report 10830540 (Version 2)
Quarter: 2015Q2

REPORT INFORMATION
  Report Type: Spontaneous
  Country: US (occurrence: US)
  Receive Date: 20150219
  Receipt Date: 20150622
  Transmission Date: 20150821
  Serious: Yes (Hospitalization)
  Sender: FDA-Public Use
  Company Number: US-NOVOPROD-438766

PATIENT
  Age: 68 Year
  Sex: Female
  Weight: 99.77 kg

DRUGS (5)
  1. VICTOZA [Suspect]
     Active Substance: LIRAGLUTIDE
     Indication: TYPE 2 DIABETES MELLITUS
     Dosage: 1.8 MG, BID
     Route: 058
     Dates: start: 20110524, end: 20111125
  2. BYETTA [Suspect]
     Active Substance: EXENATIDE
     Dosage: 10 ?G, BID
     Dates: start: 20090722, end: 20100201
  3. JANUMET [Suspect]
     Active Substance: METFORMIN HYDROCHLORIDE\SITAGLIPTIN PHOSPHATE
     Indication: TYPE 2 DIABETES MELLITUS
     Dosage: 50/500MG, ONCE DAILY
     Route: 048
     Dates: start: 20080215, end: 20090606
  4. BYETTA [Suspect]
     Active Substance: EXENATIDE
     Dosage: 10 ?G, BID
     Dates: start: 20080227, end: 20080522
  5. BYETTA [Suspect]
     Active Substance: EXENATIDE
     Indication: TYPE 2 DIABETES MELLITUS
     Dosage: 10 ?G, BID
     Route: 058
     Dates: start: 20070531, end: 20071201

REACTIONS (1)
  - Pancreatic carcinoma [Unknown]

NARRATIVE: CASE EVENT DATE: 201210
